FAERS Safety Report 9769606 (Version 1)
Quarter: 2013Q4

REPORT INFORMATION
  Report Type: Spontaneous
  Country: TR (occurrence: TR)
  Receive Date: 20131218
  Receipt Date: 20131218
  Transmission Date: 20140711
  Serious: Yes (Hospitalization)
  Sender: FDA-Public Use
  Company Number: TR-JNJFOC-20131206792

PATIENT
  Age: 13 Year
  Sex: Male
  Weight: 54 kg

DRUGS (5)
  1. METHYLPHENIDATE HYDROCHLORIDE [Suspect]
     Indication: ATTENTION DEFICIT/HYPERACTIVITY DISORDER
     Dosage: 30 TABLETS OF 18 MG
     Route: 048
  2. METHYLPHENIDATE HYDROCHLORIDE [Suspect]
     Indication: ATTENTION DEFICIT/HYPERACTIVITY DISORDER
     Dosage: 30 TABLETS OF 27 MG
     Route: 048
  3. METHYLPHENIDATE HYDROCHLORIDE [Suspect]
     Indication: ATTENTION DEFICIT/HYPERACTIVITY DISORDER
     Route: 048
  4. RISPERIDONE [Suspect]
     Indication: CONDUCT DISORDER
     Route: 048
  5. RISPERIDONE [Suspect]
     Indication: CONDUCT DISORDER
     Dosage: 2 TABLETS
     Route: 048

REACTIONS (12)
  - Suicide attempt [Unknown]
  - Cardiac arrest [Unknown]
  - Depressed mood [Unknown]
  - Dyskinesia [Unknown]
  - Agitation [Unknown]
  - Restlessness [Unknown]
  - Palpitations [Unknown]
  - Feeling abnormal [Unknown]
  - Intentional overdose [Unknown]
  - Salivary hypersecretion [Unknown]
  - Suicidal ideation [Unknown]
  - Vomiting [Unknown]
